FAERS Safety Report 18626897 (Version 1)
Quarter: 2020Q4

REPORT INFORMATION
  Report Type: Spontaneous
  Country: DE (occurrence: DE)
  Receive Date: 20201217
  Receipt Date: 20201217
  Transmission Date: 20210114
  Serious: Yes (Other)
  Sender: FDA-Public Use
  Company Number: NVSC2020DE312465

PATIENT
  Age: 78 Year
  Sex: Male

DRUGS (3)
  1. SUNITINIB [Suspect]
     Active Substance: SUNITINIB
     Indication: OEDEMA PERIPHERAL
  2. SUNITINIB [Suspect]
     Active Substance: SUNITINIB
     Indication: ANAEMIA
     Dosage: UNK
     Route: 065
  3. EVEROLIMUS. [Suspect]
     Active Substance: EVEROLIMUS
     Indication: METASTATIC RENAL CELL CARCINOMA
     Dosage: UNK
     Route: 065

REACTIONS (4)
  - Toxic cardiomyopathy [Unknown]
  - Cardiac failure [Recovered/Resolved]
  - Oedema peripheral [Unknown]
  - Anaemia [Unknown]
